FAERS Safety Report 6020345-1 (Version None)
Quarter: 2008Q4

REPORT INFORMATION
  Report Type: 
  Country: None (occurrence: None)
  Receive Date: 20081223
  Receipt Date: 20081223
  Transmission Date: 20090506
  Serious: No
  Sender: FDA-Public Use
  Company Number: None

PATIENT
  Age: 59 Year
  Sex: Female

DRUGS (1)
  1. PREVACID [Suspect]
     Dosage: TAKE 1 CAPSULE TWICE A DAY

REACTIONS (2)
  - DRY MOUTH [None]
  - PARAESTHESIA [None]
